FAERS Safety Report 9003414 (Version 3)
Quarter: 2013Q1

REPORT INFORMATION
  Report Type: Spontaneous
  Country: US (occurrence: US)
  Receive Date: 20130108
  Receipt Date: 20130214
  Transmission Date: 20140127
  Serious: Yes (Other)
  Sender: FDA-Public Use
  Company Number: US-GLAXOSMITHKLINE-A1007128A

PATIENT
  Sex: Female

DRUGS (7)
  1. FLOVENT [Suspect]
     Indication: ASTHMA
     Dosage: 2PUFF TWICE PER DAY
     Route: 055
  2. FORADIL [Concomitant]
  3. ACTOS [Concomitant]
  4. ALLEGRA [Concomitant]
  5. ANTI-CHOLESTEROL MEDICATION [Concomitant]
  6. BLOOD PRESSURE MEDICATION [Concomitant]
  7. GLYBURIDE + METFORMIN [Concomitant]

REACTIONS (5)
  - Pneumonia [Unknown]
  - Oropharyngeal pain [Unknown]
  - Respiratory tract congestion [Unknown]
  - Pharyngeal disorder [Unknown]
  - Product quality issue [Unknown]
